FAERS Safety Report 14955537 (Version 1)
Quarter: 2018Q2

REPORT INFORMATION
  Report Type: Spontaneous
  Country: US (occurrence: US)
  Receive Date: 20180531
  Receipt Date: 20180531
  Transmission Date: 20180711
  Serious: Yes (Other)
  Sender: FDA-Public Use
  Company Number: US-SA-2018SA145613

PATIENT
  Sex: Female

DRUGS (5)
  1. ROPINIROLE HCL [Concomitant]
     Active Substance: ROPINIROLE HYDROCHLORIDE
  2. PANTOPRAZOLE SODIUM. [Concomitant]
     Active Substance: PANTOPRAZOLE SODIUM
  3. AUBAGIO [Suspect]
     Active Substance: TERIFLUNOMIDE
     Indication: MULTIPLE SCLEROSIS
     Dosage: 14 MG, QD
     Dates: start: 20130606
  4. COPAXONE [Concomitant]
     Active Substance: GLATIRAMER ACETATE
  5. ALPRAZOLAM INTENSO [Concomitant]

REACTIONS (2)
  - Multiple sclerosis [Not Recovered/Not Resolved]
  - Drug ineffective [Unknown]
